FAERS Safety Report 7436476-5 (Version None)
Quarter: 2011Q2

REPORT INFORMATION
  Report Type: 
  Country: None (occurrence: None)
  Receive Date: 20110426
  Receipt Date: 20110418
  Transmission Date: 20111010
  Serious: No
  Sender: FDA-Public Use
  Company Number: US-BIOGENIDEC-2011BI014689

PATIENT
  Age: 34 Year
  Sex: Male

DRUGS (1)
  1. TYSABRI [Suspect]
     Indication: MULTIPLE SCLEROSIS
     Route: 042
     Dates: start: 20090101

REACTIONS (10)
  - MUSCULOSKELETAL STIFFNESS [None]
  - TREMOR [None]
  - BALANCE DISORDER [None]
  - CONFUSIONAL STATE [None]
  - INSOMNIA [None]
  - HEMIPARESIS [None]
  - UPPER RESPIRATORY TRACT CONGESTION [None]
  - NASAL CONGESTION [None]
  - MENTAL IMPAIRMENT [None]
  - CHILLS [None]
